FAERS Safety Report 11598153 (Version 1)
Quarter: 2015Q4

REPORT INFORMATION
  Report Type: Spontaneous
  Country: US (occurrence: US)
  Receive Date: 20151006
  Receipt Date: 20151006
  Transmission Date: 20160304
  Serious: No
  Sender: FDA-Public Use
  Company Number: US-ROCHE-1614894

PATIENT
  Sex: Male

DRUGS (2)
  1. ERIVEDGE [Suspect]
     Active Substance: VISMODEGIB
     Indication: BASAL CELL CARCINOMA
     Route: 065
     Dates: start: 20150601, end: 20150716
  2. BETAMETHASONE. [Concomitant]
     Active Substance: BETAMETHASONE
     Route: 061

REACTIONS (1)
  - Muscle spasms [Not Recovered/Not Resolved]
